FAERS Safety Report 5319101-9 (Version None)
Quarter: 2007Q2

REPORT INFORMATION
  Report Type: 
  Country: None (occurrence: None)
  Receive Date: 20070508
  Receipt Date: 20070501
  Transmission Date: 20071010
  Serious: Yes (Hospitalization)
  Sender: FDA-Public Use
  Company Number: A0649766A

PATIENT
  Age: 65 Year
  Sex: Female

DRUGS (2)
  1. LAPATINIB [Suspect]
     Dosage: 1250MG PER DAY
     Route: 048
     Dates: start: 20070322
  2. CAPECITABINE [Suspect]
     Dosage: 1950MG TWICE PER DAY
     Route: 048
     Dates: start: 20070322

REACTIONS (5)
  - ASTHENIA [None]
  - DECREASED APPETITE [None]
  - DEFAECATION URGENCY [None]
  - DIARRHOEA [None]
  - NAUSEA [None]
